FAERS Safety Report 16014379 (Version 1)
Quarter: 2019Q1

REPORT INFORMATION
  Report Type: Spontaneous
  Country: JP (occurrence: JP)
  Receive Date: 20190227
  Receipt Date: 20190227
  Transmission Date: 20190418
  Serious: Yes (Death, Other)
  Sender: FDA-Public Use
  Company Number: PHHY2019JP045053

PATIENT
  Age: 60 Year
  Sex: Male

DRUGS (5)
  1. METHOTREXATE. [Suspect]
     Active Substance: METHOTREXATE
     Indication: LUNG ADENOCARCINOMA STAGE IV
     Route: 037
  2. PEMETREXED. [Suspect]
     Active Substance: PEMETREXED
     Indication: LUNG ADENOCARCINOMA STAGE IV
     Route: 042
  3. CRIZOTINIB [Suspect]
     Active Substance: CRIZOTINIB
     Dosage: 200 MG, BID
     Route: 065
  4. CYTARABINE. [Suspect]
     Active Substance: CYTARABINE
     Indication: LUNG ADENOCARCINOMA STAGE IV
     Route: 065
  5. CRIZOTINIB [Suspect]
     Active Substance: CRIZOTINIB
     Indication: LUNG ADENOCARCINOMA STAGE IV
     Dosage: 250 MG, BID
     Route: 065
     Dates: start: 201307

REACTIONS (4)
  - Cerebral circulatory failure [Fatal]
  - Malignant neoplasm progression [Unknown]
  - Lung adenocarcinoma stage IV [Unknown]
  - Product use in unapproved indication [Unknown]
